FAERS Safety Report 14289746 (Version 3)
Quarter: 2019Q3

REPORT INFORMATION
  Report Type: Report from Study
  Country: None (occurrence: US)
  Receive Date: 20171215
  Receipt Date: 20190704
  Transmission Date: 20191004
  Serious: Yes (Other)
  Sender: FDA-Public Use
  Company Number: US-ABBVIE-17K-163-1949549-00

PATIENT
  Sex: Female

DRUGS (3)
  1. CORTISONE [Concomitant]
     Active Substance: CORTISONE
     Indication: PRODUCT USED FOR UNKNOWN INDICATION
  2. HUMIRA [Suspect]
     Active Substance: ADALIMUMAB
     Indication: RHEUMATOID ARTHRITIS
     Route: 058
     Dates: end: 20170209
  3. HUMIRA [Suspect]
     Active Substance: ADALIMUMAB
     Route: 058
     Dates: start: 2017

REACTIONS (8)
  - Feeling abnormal [Recovering/Resolving]
  - Systemic lupus erythematosus [Recovered/Resolved]
  - Joint range of motion decreased [Recovering/Resolving]
  - Exostosis [Recovering/Resolving]
  - Hypersomnia [Recovering/Resolving]
  - Vaginal haemorrhage [Recovered/Resolved]
  - Rheumatoid arthritis [Recovering/Resolving]
  - Benign vaginal neoplasm [Unknown]

NARRATIVE: CASE EVENT DATE: 2017
